FAERS Safety Report 11288256 (Version 2)
Quarter: 2015Q3

REPORT INFORMATION
  Report Type: Spontaneous
  Country: GB (occurrence: GB)
  Receive Date: 20150721
  Receipt Date: 20150828
  Transmission Date: 20151125
  Serious: Yes (Hospitalization)
  Sender: FDA-Public Use
  Company Number: GB-ASTRAZENECA-2015SE68560

PATIENT
  Age: 24799 Day
  Sex: Female
  Weight: 87 kg

DRUGS (7)
  1. FORXIGA [Suspect]
     Active Substance: DAPAGLIFLOZIN
     Route: 048
     Dates: start: 20150417, end: 20150421
  2. METFORMIN [Concomitant]
     Active Substance: METFORMIN HYDROCHLORIDE
  3. GLICLAZIDE [Concomitant]
     Active Substance: GLICLAZIDE
  4. AMITRIPTALINE [Concomitant]
     Active Substance: AMITRIPTYLINE
  5. THYROXINE [Concomitant]
     Active Substance: LEVOTHYROXINE
  6. RAMIPRIL. [Concomitant]
     Active Substance: RAMIPRIL
  7. OMEPRAZOLE. [Concomitant]
     Active Substance: OMEPRAZOLE

REACTIONS (5)
  - Headache [Unknown]
  - Malaise [Unknown]
  - Hepatic cirrhosis [Unknown]
  - Vomiting [Unknown]
  - Pancytopenia [Recovered/Resolved]

NARRATIVE: CASE EVENT DATE: 20150417
